FAERS Safety Report 4848444-8 (Version None)
Quarter: 2005Q4

REPORT INFORMATION
  Report Type: 
  Country: None (occurrence: None)
  Receive Date: 20051208
  Receipt Date: 20051205
  Transmission Date: 20060501
  Serious: Yes (Disabling)
  Sender: FDA-Public Use
  Company Number: JP-JPN-A20052967

PATIENT
  Age: 39 Year
  Sex: Male

DRUGS (7)
  1. PAXIL [Suspect]
     Dosage: 10MG PER DAY
     Route: 048
     Dates: start: 20040522, end: 20051129
  2. DIOVAN [Concomitant]
     Dosage: 40MG PER DAY
     Route: 048
  3. ACTOS [Concomitant]
     Dosage: 15MG PER DAY
     Route: 048
  4. VOGLIBOSE [Concomitant]
     Route: 048
  5. AMARYL [Concomitant]
     Route: 048
  6. JUVELA N [Concomitant]
     Route: 048
  7. RIZE [Concomitant]
     Dosage: 5MG PER DAY
     Route: 048

REACTIONS (1)
  - DEPRESSED LEVEL OF CONSCIOUSNESS [None]
